FAERS Safety Report 4604121-X (Version None)
Quarter: 2005Q1

REPORT INFORMATION
  Report Type: 
  Country: None (occurrence: None)
  Receive Date: 20050309
  Receipt Date: 20050309
  Transmission Date: 20050727
  Serious: Yes (Hospitalization, Other)
  Sender: FDA-Public Use
  Company Number: None

PATIENT
  Age: 79 Year
  Sex: Female
  Weight: 74.8435 kg

DRUGS (14)
  1. ELAVIL [Suspect]
     Indication: ANTIDEPRESSANT THERAPY
     Dosage: 100MG PO HS
     Route: 048
     Dates: start: 20041223
  2. LIPITOR [Concomitant]
  3. TOPROL-XL [Concomitant]
  4. ACCUPRIL [Concomitant]
  5. ASPIRIN [Concomitant]
  6. NORVASC [Concomitant]
  7. IMDUR [Concomitant]
  8. TRENTAL [Concomitant]
  9. ALLEGRA [Concomitant]
  10. OCCUVITE [Concomitant]
  11. NTG SL [Concomitant]
  12. TYLENOL (CAPLET) [Concomitant]
  13. ATROVENT [Concomitant]
  14. ELAVIL [Concomitant]

REACTIONS (4)
  - DISORIENTATION [None]
  - LETHARGY [None]
  - MEDICATION ERROR [None]
  - SPEECH DISORDER [None]
